FAERS Safety Report 6805827-4 (Version None)
Quarter: 2010Q2

REPORT INFORMATION
  Report Type: 
  Country: None (occurrence: None)
  Receive Date: 20100629
  Receipt Date: 20071015
  Transmission Date: 20101027
  Serious: No
  Sender: FDA-Public Use
  Company Number: US-PFIZER INC-2007086757

PATIENT
  Sex: Male
  Weight: 88.5 kg

DRUGS (6)
  1. VIAGRA [Suspect]
     Dates: start: 20040101
  2. ANDROGEL [Concomitant]
     Indication: BLOOD TESTOSTERONE
  3. TARKA [Concomitant]
  4. ACETYLSALICYLIC ACID [Concomitant]
     Indication: BLOOD PRESSURE
  5. MORPHINE SULFATE [Concomitant]
  6. LYRICA [Concomitant]

REACTIONS (1)
  - DRUG EFFECT DECREASED [None]
